FAERS Safety Report 6115558-4 (Version None)
Quarter: 2009Q1

REPORT INFORMATION
  Report Type: 
  Country: None (occurrence: None)
  Receive Date: 20090313
  Receipt Date: 20090304
  Transmission Date: 20090719
  Serious: Yes (Other)
  Sender: FDA-Public Use
  Company Number: PHHY2009BR08342

PATIENT
  Age: 89 Year
  Sex: Female
  Weight: 61 kg

DRUGS (6)
  1. EXELON [Suspect]
     Indication: PARKINSON'S DISEASE
     Dosage: 3 MG, BID
     Route: 048
     Dates: start: 20080901
  2. EXELON [Suspect]
     Dosage: 4.5 MG, BID
     Route: 048
     Dates: end: 20090201
  3. EXELON [Suspect]
     Dosage: 6 MG, BID
     Route: 048
  4. RISPERIDONE [Concomitant]
     Indication: PARKINSON'S DISEASE
     Dosage: UNK
  5. PROLOPA [Concomitant]
     Indication: PARKINSON'S DISEASE
     Dosage: 4 TIMES/DAY
     Route: 048
  6. DORMONID [Concomitant]
     Indication: INSOMNIA
     Dosage: 15 MG, QD

REACTIONS (6)
  - AGGRESSION [None]
  - AGITATION [None]
  - CONFUSIONAL STATE [None]
  - DYSPHAGIA [None]
  - MOVEMENT DISORDER [None]
  - SCREAMING [None]
